FAERS Safety Report 13892321 (Version 1)
Quarter: 2017Q3

REPORT INFORMATION
  Report Type: Spontaneous
  Country: US (occurrence: US)
  Receive Date: 20170822
  Receipt Date: 20170822
  Transmission Date: 20171127
  Serious: No
  Sender: FDA-Public Use
  Company Number: US-ASTRAZENECA-2017SE85648

PATIENT
  Sex: Male
  Weight: 86.2 kg

DRUGS (1)
  1. BYDUREON [Suspect]
     Active Substance: EXENATIDE
     Indication: DIABETES MELLITUS INADEQUATE CONTROL
     Route: 058
     Dates: start: 20170809

REACTIONS (1)
  - Back pain [Unknown]
